FAERS Safety Report 17486293 (Version 1)
Quarter: 2020Q1

REPORT INFORMATION
  Report Type: Spontaneous
  Country: CN (occurrence: CN)
  Receive Date: 20200303
  Receipt Date: 20200303
  Transmission Date: 20200409
  Serious: Yes (Other)
  Sender: FDA-Public Use
  Company Number: CN-ROCHE-2558112

PATIENT
  Age: 50 Year
  Sex: Female

DRUGS (4)
  1. CARBOPLATIN. [Suspect]
     Active Substance: CARBOPLATIN
     Indication: INVASIVE DUCTAL BREAST CARCINOMA
     Dosage: 6 CYCLES TCB REGIMEN
     Route: 065
     Dates: start: 20190815, end: 20191129
  2. PERJETA [Suspect]
     Active Substance: PERTUZUMAB
     Indication: INVASIVE DUCTAL BREAST CARCINOMA
     Dosage: INITIAL 840MG,FOLLOWED BY 420MG
     Route: 042
     Dates: start: 20190815, end: 20191129
  3. HERCEPTIN [Suspect]
     Active Substance: TRASTUZUMAB
     Indication: INVASIVE DUCTAL BREAST CARCINOMA
     Dosage: INITIAL 8MG/KG,FOLLOWED BY 6MG/KG
     Route: 042
     Dates: start: 20190815, end: 20191129
  4. DOCETAXEL. [Suspect]
     Active Substance: DOCETAXEL
     Indication: INVASIVE DUCTAL BREAST CARCINOMA
     Dosage: 6 CYCLES TCB REGIMEN
     Route: 065
     Dates: start: 20190815, end: 20191129

REACTIONS (2)
  - Bone marrow failure [Recovering/Resolving]
  - Gastrointestinal disorder [Recovering/Resolving]
